FAERS Safety Report 5495542-4 (Version None)
Quarter: 2007Q4

REPORT INFORMATION
  Report Type: 
  Country: None (occurrence: None)
  Receive Date: 20071015
  Receipt Date: 20070430
  Transmission Date: 20080405
  Serious: Yes (Other)
  Sender: FDA-Public Use
  Company Number: S07-USA-01823-01

PATIENT
  Age: 24 Year
  Sex: Female

DRUGS (4)
  1. LEXAPRO [Suspect]
     Indication: ANXIETY
     Dosage: 10 MG QD PO
     Route: 048
     Dates: start: 20070421, end: 20070501
  2. LEXAPRO [Suspect]
     Indication: DEPRESSION
     Dosage: 10 MG QD PO
     Route: 048
     Dates: start: 20070421, end: 20070501
  3. LEXAPRO [Suspect]
     Indication: ANXIETY
     Dosage: 40 MG ONCE PO
     Route: 048
     Dates: start: 20070429, end: 20070429
  4. LEXAPRO [Suspect]
     Indication: DEPRESSION
     Dosage: 40 MG ONCE PO
     Route: 048
     Dates: start: 20070429, end: 20070429

REACTIONS (2)
  - INTENTIONAL OVERDOSE [None]
  - SUICIDAL IDEATION [None]
